FAERS Safety Report 7532088-3 (Version None)
Quarter: 2011Q2

REPORT INFORMATION
  Report Type: 
  Country: None (occurrence: None)
  Receive Date: 20110608
  Receipt Date: 20110602
  Transmission Date: 20111010
  Serious: No
  Sender: FDA-Public Use
  Company Number: US-PFIZER INC-2011120527

PATIENT
  Sex: Female

DRUGS (8)
  1. PREMARIN [Suspect]
     Indication: VAGINAL INFECTION
  2. SIMVASTATIN [Concomitant]
     Indication: BLOOD CHOLESTEROL INCREASED
     Dosage: 40 MG, UNK
  3. POTASSIUM [Concomitant]
     Indication: CARDIAC DISORDER
     Dosage: 20 MG, UNK
  4. CARVEDILOL [Concomitant]
     Indication: CARDIAC DISORDER
     Dosage: UNK
  5. PREMARIN [Suspect]
     Indication: OFF LABEL USE
     Dosage: UNK, 3X/WEEK
     Route: 067
     Dates: start: 20090101, end: 20110101
  6. PREMARIN [Suspect]
     Indication: ADRENAL ATROPHY
  7. LOSARTAN POTASSIUM AND HYDROCHLOROTHIAZIDE [Concomitant]
     Indication: HYPERTENSION
     Dosage: 100/12.5 MG, UNK
  8. ALENDRONATE SODIUM [Concomitant]
     Indication: OSTEOPOROSIS
     Dosage: UNK

REACTIONS (2)
  - POOR QUALITY DRUG ADMINISTERED [None]
  - PAIN [None]
